FAERS Safety Report 25975702 (Version 1)
Quarter: 2025Q4

REPORT INFORMATION
  Report Type: Spontaneous
  Country: US (occurrence: US)
  Receive Date: 20251029
  Receipt Date: 20251029
  Transmission Date: 20260119
  Serious: Yes (Other)
  Sender: NOVO NORDISK
  Company Number: US-NOVOPROD-1546095

PATIENT
  Age: 69 Year
  Sex: Female

DRUGS (4)
  1. OZEMPIC [Suspect]
     Active Substance: SEMAGLUTIDE
     Indication: Diabetes mellitus
     Dosage: UNK
     Route: 058
     Dates: start: 2024
  2. OZEMPIC [Suspect]
     Active Substance: SEMAGLUTIDE
     Dosage: UNK
  3. OZEMPIC [Suspect]
     Active Substance: SEMAGLUTIDE
     Dosage: 0.5 MG, QW
     Route: 058
     Dates: end: 20251015
  4. OZEMPIC [Suspect]
     Active Substance: SEMAGLUTIDE
     Dosage: 1 MG
     Route: 058

REACTIONS (6)
  - Rectal haemorrhage [Recovered/Resolved]
  - Faeces hard [Unknown]
  - Anal incontinence [Unknown]
  - Constipation [Not Recovered/Not Resolved]
  - Flatulence [Unknown]
  - Abdominal pain upper [Recovered/Resolved]

NARRATIVE: CASE EVENT DATE: 20240101
